FAERS Safety Report 4368820-X (Version None)
Quarter: 2004Q2

REPORT INFORMATION
  Report Type: 
  Country: None (occurrence: None)
  Receive Date: 20040528
  Receipt Date: 20040519
  Transmission Date: 20050107
  Serious: Yes (Life-Threatening)
  Sender: FDA-Public Use
  Company Number: 2004-02210

PATIENT
  Age: 43 Year
  Sex: Male

DRUGS (3)
  1. LISINOPRIL [Suspect]
     Indication: HYPERTENSION
     Dosage: 40 MG, DAILY, ORAL
     Route: 048
  2. WASP VENOM () 100 MCG/ML [Suspect]
     Indication: ALLERGENIC DESENSITISATION PROCEDURE
     Dosage: 0.8 ML
     Dates: start: 20020301
  3. MIXED VESPID VENOM () 300MCG/ML [Suspect]
     Indication: ALLERGENIC DESENSITISATION PROCEDURE
     Dosage: 0.8 ML
     Dates: start: 20020301

REACTIONS (2)
  - ANAPHYLACTIC REACTION [None]
  - DRUG INTERACTION [None]
